FAERS Safety Report 23907517 (Version 1)
Quarter: 2024Q2

REPORT INFORMATION
  Report Type: Spontaneous
  Country: CA (occurrence: CA)
  Receive Date: 20240528
  Receipt Date: 20240528
  Transmission Date: 20240716
  Serious: Yes (Other)
  Sender: FDA-Public Use
  Company Number: CA-AUROBINDO-AUR-APL-2024-025600

PATIENT
  Age: 60 Year
  Sex: Male
  Weight: 105 kg

DRUGS (6)
  1. METHOTREXATE [Suspect]
     Active Substance: METHOTREXATE
     Indication: Product used for unknown indication
     Dosage: 1 DOSAGE FORM, EVERY WEEK (1 EVERY 1 WEEKS)
     Route: 058
  2. DUTASTERIDE [Concomitant]
     Active Substance: DUTASTERIDE
     Indication: Product used for unknown indication
     Dosage: UNK
     Route: 065
  3. HADLIMA [Concomitant]
     Active Substance: ADALIMUMAB-BWWD
     Indication: Product used for unknown indication
     Dosage: UNK
     Route: 065
  4. HADLIMA [Concomitant]
     Active Substance: ADALIMUMAB-BWWD
     Indication: Product used for unknown indication
     Dosage: UNK
     Route: 065
  5. PREDNISONE [Concomitant]
     Active Substance: PREDNISONE
     Indication: Product used for unknown indication
     Dosage: 30 MILLIGRAM, ONCE A DAY
     Route: 065
  6. TAMSULOSIN [Concomitant]
     Active Substance: TAMSULOSIN
     Indication: Product used for unknown indication
     Dosage: UNK
     Route: 065

REACTIONS (3)
  - Interstitial lung disease [Unknown]
  - Rheumatoid arthritis [Unknown]
  - Off label use [Unknown]
